FAERS Safety Report 4559406-2 (Version None)
Quarter: 2005Q1

REPORT INFORMATION
  Report Type: 
  Country: None (occurrence: None)
  Receive Date: 20050119
  Receipt Date: 20050113
  Transmission Date: 20050727
  Serious: Yes (Life-Threatening, Hospitalization)
  Sender: FDA-Public Use
  Company Number: 2005012010

PATIENT
  Age: 70 Year
  Sex: Male

DRUGS (2)
  1. ALDACTONE [Suspect]
     Indication: ACUTE MYOCARDIAL INFARCTION
     Dosage: 25 MG (25 MG, DAILY), ORAL
     Route: 048
     Dates: end: 20040703
  2. ENALAPRIL MALEATE [Suspect]
     Indication: MYOCARDIAL ISCHAEMIA
     Dosage: 5 MG (5 MG, DAILY), ORAL
     Route: 048
     Dates: end: 20040703

REACTIONS (3)
  - ATRIOVENTRICULAR BLOCK SECOND DEGREE [None]
  - DRUG INTERACTION [None]
  - HYPERKALAEMIA [None]
